FAERS Safety Report 8134236-3 (Version None)
Quarter: 2012Q1

REPORT INFORMATION
  Report Type: 
  Country: None (occurrence: None)
  Receive Date: 20120209
  Receipt Date: 20120130
  Transmission Date: 20120608
  Serious: Yes (Hospitalization, Other)
  Sender: FDA-Public Use
  Company Number: 2012MA001336

PATIENT
  Sex: Male
  Weight: 154.6766 kg

DRUGS (13)
  1. COUMADIN [Concomitant]
  2. ASPIRIN [Concomitant]
  3. MULTI-VITAMIN [Concomitant]
  4. CARDIZEM [Concomitant]
  5. FUROSEMIDE [Concomitant]
  6. KLOR-CON [Concomitant]
  7. PROTONIX [Concomitant]
  8. XANAX [Concomitant]
  9. PROAIR HFA [Concomitant]
  10. DIGOXIN [Suspect]
     Indication: PRODUCT USED FOR UNKNOWN INDICATION
     Dosage: 0.25 MG;PO
     Route: 048
     Dates: start: 20071201, end: 20080313
  11. AFRIN [Concomitant]
  12. DOXAZOSIN [Concomitant]
  13. SERTRALINE HYDROCHLORIDE [Concomitant]

REACTIONS (22)
  - HYPERTENSION [None]
  - DIASTOLIC DYSFUNCTION [None]
  - FATIGUE [None]
  - ATRIOVENTRICULAR BLOCK FIRST DEGREE [None]
  - EXERCISE TOLERANCE DECREASED [None]
  - SINUS ARRHYTHMIA [None]
  - CARDIAC FAILURE CONGESTIVE [None]
  - HEART RATE IRREGULAR [None]
  - ATRIAL FIBRILLATION [None]
  - EMPHYSEMA [None]
  - SLEEP APNOEA SYNDROME [None]
  - OBESITY [None]
  - ELECTROCARDIOGRAM QRS COMPLEX ABNORMAL [None]
  - DYSPNOEA [None]
  - PNEUMONIA [None]
  - HYPERTENSIVE HEART DISEASE [None]
  - MALAISE [None]
  - BLOOD PRESSURE INCREASED [None]
  - BREATH SOUNDS ABNORMAL [None]
  - OEDEMA PERIPHERAL [None]
  - CARDIAC STRESS TEST ABNORMAL [None]
  - CHEST PAIN [None]
